FAERS Safety Report 6304258-3 (Version None)
Quarter: 2009Q3

REPORT INFORMATION
  Report Type: 
  Country: None (occurrence: None)
  Receive Date: 20090806
  Receipt Date: 20090620
  Transmission Date: 20100115
  Serious: Yes (Life-Threatening, Hospitalization)
  Sender: FDA-Public Use
  Company Number: 2009EU002884

PATIENT
  Age: 39 Year
  Sex: Female

DRUGS (16)
  1. FK506 (TACROLIMUS CAPSULES) [Suspect]
     Indication: RENAL TRANSPLANT
     Dosage: 4 MG, BID, ORAL
     Route: 048
     Dates: start: 20030424, end: 20040209
  2. MYCOPHENOLATE MOFETIL [Suspect]
     Indication: RENAL TRANSPLANT
     Dosage: 1 G, UID/QD, ORAL
     Route: 048
     Dates: start: 20021204
  3. DACLIZUMAB(DACLIZUMAB) [Suspect]
     Indication: RENAL TRANSPLANT
     Dosage: 120 MG, TOTAL DOSE; IV NOS; 60 MG, CYCLE, IV NOS
     Route: 042
     Dates: start: 20021204
  4. DACLIZUMAB(DACLIZUMAB) [Suspect]
     Indication: RENAL TRANSPLANT
     Dosage: 120 MG, TOTAL DOSE; IV NOS; 60 MG, CYCLE, IV NOS
     Route: 042
     Dates: start: 20021218
  5. METHYLPREDNISOLONE [Suspect]
     Indication: RENAL TRANSPLANT
     Dosage: 500 MG UID/QD, IV NOS
     Route: 042
     Dates: start: 20030206, end: 20030209
  6. PREDNISOLONE [Suspect]
     Indication: RENAL TRANSPLANT
     Dosage: 100 MG, UID/QD, IV NOS; 2.5 MG, UID/QD, ORAL
     Route: 042
     Dates: start: 20021204, end: 20021204
  7. PREDNISOLONE [Suspect]
     Indication: RENAL TRANSPLANT
     Dosage: 100 MG, UID/QD, IV NOS; 2.5 MG, UID/QD, ORAL
     Route: 042
     Dates: start: 20081205
  8. CYCLOSPORINE [Suspect]
     Indication: RENAL TRANSPLANT
     Dosage: 1 MG, UID/QD, ORAL
     Route: 048
     Dates: start: 20021204, end: 20030424
  9. IMIPENEM (IMIPENEM) [Concomitant]
  10. INSULIN LISPRO (INSULIN LISPRO) [Concomitant]
  11. IRBESARTAN [Concomitant]
  12. CLOXACILLIN [Concomitant]
  13. METOPROLOL (METOPROLOL SUCCINATE) [Concomitant]
  14. CEFUROXIME [Concomitant]
  15. CEFOTAXIME SODIUM [Concomitant]
  16. PIPERACILLINE (PIPERACILLIN SODIUM) [Concomitant]

REACTIONS (6)
  - ENTEROBACTER SEPSIS [None]
  - FLUID OVERLOAD [None]
  - KLEBSIELLA SEPSIS [None]
  - PERIPHERAL ISCHAEMIA [None]
  - PSEUDOMONAS INFECTION [None]
  - STAPHYLOCOCCAL SEPSIS [None]
